FAERS Safety Report 8766521 (Version 2)
Quarter: 2013Q4

REPORT INFORMATION
  Report Type: Spontaneous
  Country: US (occurrence: US)
  Receive Date: 20120905
  Receipt Date: 20131018
  Transmission Date: 20140711
  Serious: Yes (Death)
  Sender: FDA-Public Use
  Company Number: US-ASTRAZENECA-2006UW16057

PATIENT
  Age: 36 Year
  Sex: Female
  Weight: 87.1 kg

DRUGS (24)
  1. SEROQUEL [Suspect]
     Indication: BIPOLAR DISORDER
     Route: 048
     Dates: start: 20020101, end: 20060418
  2. SEROQUEL [Suspect]
     Indication: DEPRESSION
     Route: 048
     Dates: start: 20020101, end: 20060418
  3. SEROQUEL [Suspect]
     Indication: BIPOLAR DISORDER
     Route: 048
     Dates: start: 200206
  4. SEROQUEL [Suspect]
     Indication: DEPRESSION
     Route: 048
     Dates: start: 200206
  5. SEROQUEL [Suspect]
     Indication: BIPOLAR DISORDER
     Route: 048
     Dates: start: 200207
  6. SEROQUEL [Suspect]
     Indication: DEPRESSION
     Route: 048
     Dates: start: 200207
  7. SEROQUEL [Suspect]
     Indication: BIPOLAR DISORDER
     Route: 048
     Dates: start: 200304, end: 20060418
  8. SEROQUEL [Suspect]
     Indication: DEPRESSION
     Route: 048
     Dates: start: 200304, end: 20060418
  9. SEROQUEL [Suspect]
     Indication: BIPOLAR DISORDER
     Route: 048
     Dates: start: 20060418
  10. SEROQUEL [Suspect]
     Indication: DEPRESSION
     Route: 048
     Dates: start: 20060418
  11. METHADONE [Suspect]
     Route: 065
  12. ANTIDEPRESSANTS [Suspect]
     Indication: DEPRESSION
     Route: 065
  13. IMIPRAMINE [Concomitant]
     Dates: start: 200008, end: 20010104
  14. IMIPRAMINE [Concomitant]
     Dates: start: 20021029, end: 20030301
  15. IMIPRAMINE [Concomitant]
     Dates: start: 20050926, end: 20060503
  16. TRANZADINE [Concomitant]
  17. GABAPENTINE [Concomitant]
  18. NEURONTIN [Concomitant]
  19. WELLBUTRIN [Concomitant]
  20. DIAZEPAM [Concomitant]
  21. LEVOXYL [Concomitant]
  22. METFORMIN [Concomitant]
  23. ABILIFY [Concomitant]
     Dates: start: 20050719
  24. RISPERDAL [Concomitant]
     Dates: start: 20040428, end: 20040809

REACTIONS (5)
  - Hepatic steatosis [Fatal]
  - Hepatic failure [Fatal]
  - Toxicity to various agents [Fatal]
  - Diabetes mellitus [Unknown]
  - Back pain [Unknown]
